FAERS Safety Report 10974344 (Version 2)
Quarter: 2015Q2

REPORT INFORMATION
  Report Type: Spontaneous
  Country: US (occurrence: US)
  Receive Date: 20150401
  Receipt Date: 20150410
  Transmission Date: 20150821
  Serious: No
  Sender: FDA-Public Use
  Company Number: US-BAYER-2015-062581

PATIENT
  Sex: Male

DRUGS (2)
  1. BETASERON [Suspect]
     Active Substance: INTERFERON BETA-1B
     Indication: RELAPSING-REMITTING MULTIPLE SCLEROSIS
     Dosage: UNK
  2. GILENYA [Suspect]
     Active Substance: FINGOLIMOD HYDROCHLORIDE
     Dosage: UNK

REACTIONS (9)
  - Pain [None]
  - Feeling abnormal [None]
  - Gait disturbance [None]
  - Eye disorder [None]
  - Drug dose omission [None]
  - Memory impairment [None]
  - Drug intolerance [None]
  - Influenza like illness [None]
  - Balance disorder [None]
